FAERS Safety Report 15412451 (Version 2)
Quarter: 2018Q4

REPORT INFORMATION
  Report Type: Spontaneous
  Country: US (occurrence: US)
  Receive Date: 20180921
  Receipt Date: 20181025
  Transmission Date: 20190204
  Serious: No
  Sender: FDA-Public Use
  Company Number: US-SA-2018SA260754

PATIENT
  Age: 61 Year
  Sex: Female
  Weight: 54 kg

DRUGS (1)
  1. XYZAL ALLERGY 24HR [Suspect]
     Active Substance: LEVOCETIRIZINE DIHYDROCHLORIDE
     Indication: HYPERSENSITIVITY
     Dosage: 5 MG, QD
     Route: 065
     Dates: start: 20180911, end: 20180914

REACTIONS (3)
  - Throat irritation [Unknown]
  - Oropharyngeal pain [Unknown]
  - Drug ineffective [Unknown]
